FAERS Safety Report 5104670-4 (Version None)
Quarter: 2006Q3

REPORT INFORMATION
  Report Type: 
  Country: None (occurrence: None)
  Receive Date: 20060911
  Receipt Date: 20060822
  Transmission Date: 20061208
  Serious: Yes (Hospitalization, Other)
  Sender: FDA-Public Use
  Company Number: US200608004893

PATIENT
  Sex: Female

DRUGS (5)
  1. HUMULIN NPH (HUMAN INSULN (RDNA ORIGIN) NPH)VIAL [Suspect]
     Indication: DIABETES MELLITUS NON-INSULIN-DEPENDENT
  2. HUMALOG [Suspect]
     Indication: DIABETES MELLITUS NON-INSULIN-DEPENDENT
  3. LASIX [Concomitant]
  4. XANAX [Concomitant]
  5. OXYGEN (OXYGEN) [Concomitant]

REACTIONS (11)
  - ASTHENIA [None]
  - BACK PAIN [None]
  - BLOOD GLUCOSE DECREASED [None]
  - BLOOD GLUCOSE INCREASED [None]
  - FEELING ABNORMAL [None]
  - HYPOACUSIS [None]
  - LOSS OF CONSCIOUSNESS [None]
  - MALAISE [None]
  - RESTLESSNESS [None]
  - URINARY TRACT INFECTION [None]
  - UROSEPSIS [None]
